FAERS Safety Report 5974190-3 (Version None)
Quarter: 2008Q4

REPORT INFORMATION
  Report Type: 
  Country: None (occurrence: None)
  Receive Date: 20081201
  Receipt Date: 20081119
  Transmission Date: 20090506
  Serious: Yes (Other)
  Sender: FDA-Public Use
  Company Number: DE-PFIZER INC-2008054490

PATIENT
  Sex: Male
  Weight: 85 kg

DRUGS (2)
  1. CHAMPIX [Suspect]
     Indication: NICOTINE DEPENDENCE
     Route: 048
     Dates: start: 20080421, end: 20080616
  2. ACETYLSALICYLIC ACID SRT [Concomitant]

REACTIONS (4)
  - IMMUNOGLOBULINS INCREASED [None]
  - NEURODERMATITIS [None]
  - OCULAR HYPERAEMIA [None]
  - SWELLING [None]
